FAERS Safety Report 13499042 (Version 7)
Quarter: 2017Q3

REPORT INFORMATION
  Report Type: Spontaneous
  Country: KR (occurrence: KR)
  Receive Date: 20170501
  Receipt Date: 20170913
  Transmission Date: 20171127
  Serious: Yes (Hospitalization)
  Sender: FDA-Public Use
  Company Number: KR-009507513-1703KOR000863

PATIENT
  Age: 41 Year
  Sex: Female
  Weight: 53.5 kg

DRUGS (20)
  1. EMEND (FOSAPREPITANT DIMEGLUMINE) [Suspect]
     Active Substance: FOSAPREPITANT DIMEGLUMINE
     Dosage: 150 MG, ONCE
     Route: 042
     Dates: start: 20170324, end: 20170324
  2. DEXAMETHASONE SODIUM PHOSPHATE. [Concomitant]
     Active Substance: DEXAMETHASONE SODIUM PHOSPHATE
     Dosage: 12 MG, ONCE
     Route: 042
     Dates: start: 20170324, end: 20170324
  3. ALOXI [Concomitant]
     Active Substance: PALONOSETRON HYDROCHLORIDE
     Dosage: 0.25 MG, ONCE
     Route: 042
     Dates: start: 20170224, end: 20170224
  4. AD MYCIN VIAL [Concomitant]
     Dosage: 70 MG, ONCE, CYCLE 4
     Route: 042
     Dates: start: 20170324, end: 20170324
  5. AD MYCIN VIAL [Concomitant]
     Indication: INVASIVE DUCTAL BREAST CARCINOMA
     Dosage: 90 MG, ONCE, CYCLE 2
     Route: 042
     Dates: start: 20170203, end: 20170203
  6. DEXAMETHASONE SODIUM PHOSPHATE. [Concomitant]
     Active Substance: DEXAMETHASONE SODIUM PHOSPHATE
     Dosage: 12 MG, ONCE
     Route: 042
     Dates: start: 20170224, end: 20170224
  7. EMEND (FOSAPREPITANT DIMEGLUMINE) [Suspect]
     Active Substance: FOSAPREPITANT DIMEGLUMINE
     Dosage: 150 MG, ONCE
     Route: 042
     Dates: start: 20170224, end: 20170224
  8. CARDIOXANE [Concomitant]
     Active Substance: DEXRAZOXANE HYDROCHLORIDE
     Dosage: 1000 MG, ONCE, CYCLE 4
     Route: 042
     Dates: start: 20170324, end: 20170324
  9. ENDOXAN [Concomitant]
     Active Substance: CYCLOPHOSPHAMIDE
     Dosage: 910 MG, ONCE, CYCLE 3
     Route: 042
     Dates: start: 20170224, end: 20170224
  10. ENDOXAN [Concomitant]
     Active Substance: CYCLOPHOSPHAMIDE
     Dosage: 725 MG, ONCE, CYCLE 4
     Route: 042
     Dates: start: 20170324, end: 20170324
  11. ALOXI [Concomitant]
     Active Substance: PALONOSETRON HYDROCHLORIDE
     Dosage: 0.25 MG, ONCE
     Route: 042
     Dates: start: 20170324, end: 20170324
  12. MACPERAN [Concomitant]
     Active Substance: METOCLOPRAMIDE HYDROCHLORIDE
     Indication: INVASIVE DUCTAL BREAST CARCINOMA
     Dosage: 10 MG, TID
     Route: 042
     Dates: start: 20170203, end: 20170203
  13. ENDOXAN [Concomitant]
     Active Substance: CYCLOPHOSPHAMIDE
     Indication: INVASIVE DUCTAL BREAST CARCINOMA
     Dosage: 915 MG, ONCE, CYCLE 2
     Route: 042
     Dates: start: 20170203, end: 20170203
  14. MACPERAN [Concomitant]
     Active Substance: METOCLOPRAMIDE HYDROCHLORIDE
     Dosage: 10 MG, TID
     Route: 042
     Dates: start: 20170224, end: 20170224
  15. EMEND (FOSAPREPITANT DIMEGLUMINE) [Suspect]
     Active Substance: FOSAPREPITANT DIMEGLUMINE
     Indication: PROPHYLAXIS OF NAUSEA AND VOMITING
     Dosage: 150 MG, ONCE
     Route: 042
     Dates: start: 20170203, end: 20170203
  16. CARDIOXANE [Concomitant]
     Active Substance: DEXRAZOXANE HYDROCHLORIDE
     Indication: INVASIVE DUCTAL BREAST CARCINOMA
     Dosage: 1000 MG, ONCE, CYCLE 2
     Route: 042
     Dates: start: 20170203, end: 20170203
  17. DEXAMETHASONE SODIUM PHOSPHATE. [Concomitant]
     Active Substance: DEXAMETHASONE SODIUM PHOSPHATE
     Indication: INVASIVE DUCTAL BREAST CARCINOMA
     Dosage: 12 MG, ONCE
     Route: 042
     Dates: start: 20170203, end: 20170203
  18. ALOXI [Concomitant]
     Active Substance: PALONOSETRON HYDROCHLORIDE
     Indication: INVASIVE DUCTAL BREAST CARCINOMA
     Dosage: 0.25 MG, ONCE
     Route: 042
     Dates: start: 20170203, end: 20170203
  19. CARDIOXANE [Concomitant]
     Active Substance: DEXRAZOXANE HYDROCHLORIDE
     Dosage: 1000 MG, ONCE, CYCLE 3
     Route: 042
     Dates: start: 20170224, end: 20170224
  20. AD MYCIN VIAL [Concomitant]
     Indication: INVASIVE DUCTAL BREAST CARCINOMA
     Dosage: 90 MG, ONCE, CYCLE 3
     Route: 042
     Dates: start: 20170224, end: 20170224

REACTIONS (2)
  - Hepatic enzyme increased [Recovered/Resolved]
  - Drug ineffective [Unknown]

NARRATIVE: CASE EVENT DATE: 201702
